FAERS Safety Report 22209808 (Version 2)
Quarter: 2023Q2

REPORT INFORMATION
  Report Type: Spontaneous
  Country: US (occurrence: US)
  Receive Date: 20230414
  Receipt Date: 20230517
  Transmission Date: 20230721
  Serious: No
  Sender: FDA-Public Use
  Company Number: US-JNJFOC-20230411495

PATIENT
  Age: 42 Year
  Sex: Male

DRUGS (14)
  1. SPRAVATO [Suspect]
     Active Substance: ESKETAMINE
     Indication: Depression
     Dates: start: 20230322
  2. SPRAVATO [Suspect]
     Active Substance: ESKETAMINE
     Dates: start: 20230324
  3. SPRAVATO [Suspect]
     Active Substance: ESKETAMINE
     Dates: start: 20230329
  4. SPRAVATO [Suspect]
     Active Substance: ESKETAMINE
     Dates: start: 20230404
  5. SPRAVATO [Suspect]
     Active Substance: ESKETAMINE
     Dates: start: 20230407
  6. SPRAVATO [Suspect]
     Active Substance: ESKETAMINE
     Dates: start: 20230412
  7. SPRAVATO [Suspect]
     Active Substance: ESKETAMINE
     Dates: start: 20230418
  8. SPRAVATO [Suspect]
     Active Substance: ESKETAMINE
     Dates: start: 20230425
  9. VYVANSE [Concomitant]
     Active Substance: LISDEXAMFETAMINE DIMESYLATE
     Indication: Attention deficit hyperactivity disorder
     Dosage: 30 MG PO
  10. ADDERALL [Concomitant]
     Active Substance: AMPHETAMINE ASPARTATE\AMPHETAMINE SULFATE\DEXTROAMPHETAMINE SACCHARATE\DEXTROAMPHETAMINE SULFATE
     Indication: Attention deficit hyperactivity disorder
     Dosage: 15 MG PO
  11. LORAZEPAM [Concomitant]
     Active Substance: LORAZEPAM
     Indication: Anxiety
     Dosage: 0.5 MG PO
  12. BUPROPION HYDROCHLORIDE [Concomitant]
     Active Substance: BUPROPION HYDROCHLORIDE
     Indication: Depression
     Dosage: 300 MG PO
  13. REXULTI [Concomitant]
     Active Substance: BREXPIPRAZOLE
     Indication: Depression
     Dosage: 0.5 MG PO
  14. PROPRANOLOL [Concomitant]
     Active Substance: PROPRANOLOL HYDROCHLORIDE
     Indication: Anxiety
     Dosage: 10 MG PO

REACTIONS (7)
  - Tachyphrenia [Unknown]
  - Myalgia [Unknown]
  - Headache [Unknown]
  - Lethargy [Unknown]
  - Nausea [Unknown]
  - Sedation [Recovered/Resolved]
  - Dissociation [Recovered/Resolved]

NARRATIVE: CASE EVENT DATE: 20230327
